FAERS Safety Report 7469989-0 (Version None)
Quarter: 2011Q2

REPORT INFORMATION
  Report Type: 
  Country: None (occurrence: None)
  Receive Date: 20110510
  Receipt Date: 20110503
  Transmission Date: 20111010
  Serious: Yes (Death, Hospitalization)
  Sender: FDA-Public Use
  Company Number: US-ROCHE-775040

PATIENT
  Age: 71 Year
  Sex: Female
  Weight: 50 kg

DRUGS (2)
  1. ERLOTINIB HYDROCHLORIDE [Suspect]
     Indication: LUNG ADENOCARCINOMA
     Dosage: TOTAL DOSE: 2550 MG, LAST ADMINISTERED DATE: 22 APRIL 2011
     Route: 048
     Dates: start: 20110406
  2. AVASTIN [Suspect]
     Indication: LUNG ADENOCARCINOMA
     Dosage: DOSE: 15 MG/KG IV INFUSION DAY 1 OF 21 DAY CYCLE, TOTAL DOSE: 750 MG, DATE OF LAST DOSE: 06 APR 2011
     Route: 042
     Dates: start: 20110406

REACTIONS (1)
  - HYPOXIA [None]
